FAERS Safety Report 6978746-0 (Version None)
Quarter: 2010Q3

REPORT INFORMATION
  Report Type: 
  Country: None (occurrence: None)
  Receive Date: 20100913
  Receipt Date: 20100902
  Transmission Date: 20110219
  Serious: Yes (Hospitalization)
  Sender: FDA-Public Use
  Company Number: DE-ROCHE-725404

PATIENT
  Sex: Female
  Weight: 55 kg

DRUGS (14)
  1. TOCILIZUMAB [Suspect]
     Indication: PRODUCT USED FOR UNKNOWN INDICATION
     Route: 065
     Dates: start: 20100531, end: 20100803
  2. BLINDED OCRELIZUMAB [Suspect]
     Indication: RHEUMATOID ARTHRITIS
     Dosage: FREQUENCY: DAY 1+15, LAST DOSE PRIOR SAE: 19 JANUARY 2010, FORM: FLUID
     Route: 042
     Dates: start: 20080915
  3. MTX [Suspect]
     Indication: PRODUCT USED FOR UNKNOWN INDICATION
     Route: 065
     Dates: start: 20080601
  4. MTX [Suspect]
     Route: 065
     Dates: start: 19990501, end: 20100901
  5. VOLTAREN [Suspect]
     Indication: PRODUCT USED FOR UNKNOWN INDICATION
     Dosage: VOLTAREN RESINAT
     Route: 065
     Dates: start: 20100608, end: 20100901
  6. SANDOCAL [Concomitant]
     Dates: start: 20060101
  7. FOLIC ACID [Concomitant]
     Dates: start: 19990501
  8. DIGIMERCK [Concomitant]
     Dates: start: 20080101
  9. HCT [Concomitant]
     Dates: start: 20080101
  10. ASPIRIN [Concomitant]
     Dates: start: 20081202
  11. OMEPRAZOLE [Concomitant]
     Dates: start: 20090801
  12. IRBESARTAN [Concomitant]
     Dates: start: 20100117
  13. VALORON [Concomitant]
     Dates: start: 20100601, end: 20100830
  14. CONCOR [Concomitant]
     Dates: start: 20080601

REACTIONS (1)
  - HEPATITIS CHOLESTATIC [None]
